FAERS Safety Report 6841468-0 (Version None)
Quarter: 2010Q3

REPORT INFORMATION
  Report Type: 
  Country: None (occurrence: None)
  Receive Date: 20100714
  Receipt Date: 20070705
  Transmission Date: 20110219
  Serious: No
  Sender: FDA-Public Use
  Company Number: US-PFIZER INC-2007056657

PATIENT
  Sex: Male
  Weight: 61.2 kg

DRUGS (6)
  1. CHANTIX [Suspect]
     Indication: SMOKING CESSATION THERAPY
     Route: 048
     Dates: start: 20070430, end: 20070703
  2. LOTENSIN [Concomitant]
  3. ZOCOR [Concomitant]
  4. ACETYLSALICYLIC ACID [Concomitant]
  5. BENADRYL [Concomitant]
  6. WELLBUTRIN [Concomitant]

REACTIONS (2)
  - ERYTHEMA [None]
  - PRURITUS [None]
